FAERS Safety Report 8473659-X (Version None)
Quarter: 2012Q2

REPORT INFORMATION
  Report Type: 
  Country: None (occurrence: None)
  Receive Date: 20120628
  Receipt Date: 20110916
  Transmission Date: 20120825
  Serious: Yes (Other)
  Sender: FDA-Public Use
  Company Number: US-MYLANLABS-2011S1016545

PATIENT
  Age: 57 Year
  Sex: Male

DRUGS (9)
  1. GLIPIZIDE [Concomitant]
  2. ZYPREXA [Concomitant]
  3. MULTI-VITAMIN [Concomitant]
  4. CLOZAPINE [Suspect]
     Dates: end: 20110825
  5. CLOZAPINE [Suspect]
     Indication: SCHIZOPHRENIA
     Dates: end: 20110825
  6. LISINOPRIL [Concomitant]
  7. ENALAPRIL MALEATE [Concomitant]
  8. LAMICTAL [Concomitant]
     Dosage: USING THE 100MG TABLET
  9. SENNA-MINT WAF [Concomitant]

REACTIONS (2)
  - LEUKOPENIA [None]
  - GRANULOCYTOPENIA [None]
